FAERS Safety Report 6544618-9 (Version None)
Quarter: 2010Q1

REPORT INFORMATION
  Report Type: 
  Country: None (occurrence: None)
  Receive Date: 20100121
  Receipt Date: 20100114
  Transmission Date: 20100710
  Serious: Yes (Hospitalization)
  Sender: FDA-Public Use
  Company Number: FR-ASTRAZENECA-2010SE01745

PATIENT
  Age: 15616 Day
  Sex: Male

DRUGS (2)
  1. FOSCAVIR [Suspect]
     Indication: CYTOMEGALOVIRUS OESOPHAGITIS
     Route: 042
     Dates: start: 20090416, end: 20090422
  2. CYMEVAN [Concomitant]
     Route: 065
     Dates: start: 20090314, end: 20090415

REACTIONS (2)
  - AGRANULOCYTOSIS [None]
  - FEBRILE NEUTROPENIA [None]
